FAERS Safety Report 11026121 (Version 1)
Quarter: 2015Q2

REPORT INFORMATION
  Report Type: Spontaneous
  Country: US (occurrence: None)
  Receive Date: 20150413
  Receipt Date: 20150413
  Transmission Date: 20150821
  Serious: Yes (Hospitalization)
  Sender: FDA-Public Use
  Company Number: None

PATIENT
  Age: 60 Year
  Sex: Male
  Weight: 69.95 kg

DRUGS (17)
  1. CIALIS [Concomitant]
     Active Substance: TADALAFIL
  2. LEVOTHYROXINE [Concomitant]
     Active Substance: LEVOTHYROXINE
  3. MIRTAZAPINE. [Concomitant]
     Active Substance: MIRTAZAPINE
  4. TRAMADOL [Concomitant]
     Active Substance: TRAMADOL
  5. ALPRAZOLAM. [Concomitant]
     Active Substance: ALPRAZOLAM
  6. NYSTATIN. [Concomitant]
     Active Substance: NYSTATIN
  7. ACYCLOVIR. [Concomitant]
     Active Substance: ACYCLOVIR
  8. IMIPRAMINE [Concomitant]
     Active Substance: IMIPRAMINE
  9. LISINOPRIL. [Concomitant]
     Active Substance: LISINOPRIL
  10. MODAFINIL. [Concomitant]
     Active Substance: MODAFINIL
  11. TOPROL XL [Concomitant]
     Active Substance: METOPROLOL SUCCINATE
  12. ALEMTUZUMAB [Suspect]
     Active Substance: ALEMTUZUMAB
     Indication: MULTIPLE SCLEROSIS
     Dosage: DAYS 1 TO 5 12MG QD IV
     Route: 042
     Dates: start: 20131111, end: 20131115
  13. SOLU-MEDROL [Suspect]
     Active Substance: METHYLPREDNISOLONE SODIUM SUCCINATE
     Dosage: DAYS 1 TO 5 1G QD IV
     Route: 042
     Dates: start: 20131111, end: 20131115
  14. CLONAZEPAM. [Concomitant]
     Active Substance: CLONAZEPAM
  15. MEROPROLOL [Concomitant]
  16. MULTIVITAMIN [Concomitant]
     Active Substance: VITAMINS
  17. LITHIUM CARBONATE. [Concomitant]
     Active Substance: LITHIUM CARBONATE

REACTIONS (5)
  - Urinary incontinence [None]
  - Dysstasia [None]
  - Pain in extremity [None]
  - Fall [None]
  - Injury [None]

NARRATIVE: CASE EVENT DATE: 20150409
